FAERS Safety Report 7206456-3 (Version None)
Quarter: 2010Q4

REPORT INFORMATION
  Report Type: 
  Country: None (occurrence: None)
  Receive Date: 20101229
  Receipt Date: 20101229
  Transmission Date: 20110411
  Serious: Yes (Hospitalization)
  Sender: FDA-Public Use
  Company Number: None

PATIENT
  Age: 52 Year
  Sex: Female
  Weight: 70.3075 kg

DRUGS (1)
  1. ETODOLAC [Suspect]
     Indication: INFLAMMATION
     Dosage: 1 EVERY BUCCAL
     Route: 002
     Dates: start: 20101221, end: 20101223

REACTIONS (3)
  - DIARRHOEA HAEMORRHAGIC [None]
  - HAEMORRHAGE [None]
  - PAIN [None]
